FAERS Safety Report 5922621-7 (Version None)
Quarter: 2008Q4

REPORT INFORMATION
  Report Type: 
  Country: None (occurrence: None)
  Receive Date: 20081017
  Receipt Date: 20081008
  Transmission Date: 20090506
  Serious: Yes (Death, Hospitalization)
  Sender: FDA-Public Use
  Company Number: FR-ROCHE-575135

PATIENT
  Sex: Female

DRUGS (8)
  1. ROCEPHIN [Suspect]
     Indication: UNEVALUABLE EVENT
     Dosage: REGIMEN REPORTED: ONE DOSE DAILY
     Route: 042
     Dates: start: 20080127, end: 20080201
  2. TRIFLUCAN [Suspect]
     Indication: ORAL CANDIDIASIS
     Route: 048
  3. FUCIDINE CAP [Suspect]
     Dosage: REGIMEN REPORTED: TWO DOSES TWICE DAILY
     Route: 048
  4. NEXIUM [Concomitant]
     Dosage: REGIMEN REPORTED: ONE DOSE DAILY DRUG REPORTED: INEXIUM 20
     Route: 048
     Dates: end: 20080126
  5. FUROSEMIDE [Concomitant]
     Dosage: ONE DOSE DAILY.
     Route: 048
     Dates: end: 20080126
  6. PREVISCAN [Concomitant]
     Dosage: REGIMEN REPORTED: 0.75 DOSES.
     Route: 048
     Dates: end: 20080129
  7. 1 CONCOMITANT DRUG [Concomitant]
     Dosage: DRUG: RAMIPIL
     Dates: end: 20080126
  8. PARAPSYLLIUM [Concomitant]
     Dosage: REGIMEN REPORTED: ONE DOSE PER DAY.
     Route: 048
     Dates: end: 20080126

REACTIONS (4)
  - CHOLESTASIS [None]
  - CYTOLYTIC HEPATITIS [None]
  - JAUNDICE [None]
  - RENAL FAILURE ACUTE [None]
